FAERS Safety Report 5510067-5 (Version None)
Quarter: 2007Q4

REPORT INFORMATION
  Report Type: 
  Country: None (occurrence: None)
  Receive Date: 20071108
  Receipt Date: 20070530
  Transmission Date: 20080405
  Serious: No
  Sender: FDA-Public Use
  Company Number: US-ABBOTT-07P-163-0369935-00

PATIENT
  Sex: Female
  Weight: 67.192 kg

DRUGS (4)
  1. CLARITHROMYCIN 500MG TABLETS [Suspect]
     Indication: MYCOBACTERIUM CHELONEI INFECTION
     Route: 048
     Dates: start: 20060511
  2. CLARITHROMYCIN 500MG TABLETS [Suspect]
     Indication: ABSCESS
  3. ESTROGENS CONJUGATED [Concomitant]
     Indication: DRUG USE FOR UNKNOWN INDICATION
  4. MUCINEX [Concomitant]
     Indication: DRUG USE FOR UNKNOWN INDICATION

REACTIONS (3)
  - ALOPECIA [None]
  - FUNGAL INFECTION [None]
  - SKIN DISORDER [None]
